FAERS Safety Report 6959479-3 (Version None)
Quarter: 2010Q3

REPORT INFORMATION
  Report Type: 
  Country: None (occurrence: None)
  Receive Date: 20100827
  Receipt Date: 20100818
  Transmission Date: 20110219
  Serious: Yes (Hospitalization)
  Sender: FDA-Public Use
  Company Number: DSU-2010-04240

PATIENT
  Age: 81 Year
  Sex: Female
  Weight: 96.6162 kg

DRUGS (4)
  1. WELCHOL [Suspect]
     Indication: HYPERLIPIDAEMIA
     Dosage: 3750 MG (1875 MG, BID), PER ORAL
     Route: 048
     Dates: start: 20100701, end: 20100701
  2. WELCHOL [Suspect]
     Indication: HYPERLIPIDAEMIA
     Dosage: 3.75 GM (3.75 GM, QD), PER ORAL
     Route: 048
     Dates: start: 20100501, end: 20100701
  3. WELCHOL [Suspect]
     Indication: HYPERLIPIDAEMIA
     Dosage: 3.75 GM (3.75 GM, QD), PER ORAL
     Route: 048
     Dates: start: 20100701, end: 20100818
  4. JANUVIA (SITAGLIPTIN PHOSPHATE) (SITAGLIPTIN PHOSPHATE) [Concomitant]

REACTIONS (7)
  - CEREBROVASCULAR ACCIDENT [None]
  - DYSPHAGIA [None]
  - PROCEDURAL COMPLICATION [None]
  - PRODUCT SIZE ISSUE [None]
  - SURGERY [None]
  - UNEVALUABLE EVENT [None]
  - VASCULAR GRAFT [None]
